FAERS Safety Report 14829718 (Version 1)
Quarter: 2018Q2

REPORT INFORMATION
  Report Type: Spontaneous
  Country: ES (occurrence: ES)
  Receive Date: 20180430
  Receipt Date: 20180430
  Transmission Date: 20180711
  Serious: Yes (Death, Hospitalization, Disabling, Other)
  Sender: FDA-Public Use
  Company Number: ES-PFIZER INC-2018175210

PATIENT
  Age: 72 Year
  Sex: Female
  Weight: 74 kg

DRUGS (6)
  1. GEMCITABINE HYDROCHLORIDE. [Suspect]
     Active Substance: GEMCITABINE HYDROCHLORIDE
     Indication: OVARIAN CANCER
     Dosage: 2000 MG/M2, UNK
     Route: 042
     Dates: start: 20171016, end: 20171031
  2. FUROSEMIDE. [Concomitant]
     Active Substance: FUROSEMIDE
     Indication: PLEURAL EFFUSION
     Dosage: 40 MG, 1X/DAY
     Route: 048
     Dates: start: 20171005, end: 20171020
  3. AVASTIN [Suspect]
     Active Substance: BEVACIZUMAB
     Indication: OVARIAN CANCER
     Dosage: 15 MG/KG, UNK
     Route: 042
     Dates: start: 20171016, end: 20171031
  4. TRAMADOL + PARACETAMOL PHARMAKERN [Concomitant]
     Indication: PAIN
     Dosage: 1 DF, 3X/DAY (8 HOURS (DOSE: 37.5/325))
     Route: 048
     Dates: start: 20171013, end: 20171020
  5. CARBOPLATIN. [Suspect]
     Active Substance: CARBOPLATIN
     Indication: OVARIAN CANCER
     Dosage: 450 MG, UNK
     Route: 042
     Dates: start: 20171016, end: 20171031
  6. BEMIPARIN [Concomitant]
     Active Substance: BEMIPARIN
     Indication: ATRIAL FIBRILLATION
     Dosage: 7500 IU, 1X/DAY (24 HOUR)
     Route: 058
     Dates: start: 20171005, end: 20171020

REACTIONS (7)
  - Neutropenia [Fatal]
  - Intestinal obstruction [Fatal]
  - Intestinal obstruction [Fatal]
  - Malaise [Fatal]
  - Haematoma [Fatal]
  - Compartment syndrome [Fatal]
  - Anaemia [Fatal]

NARRATIVE: CASE EVENT DATE: 201710
